FAERS Safety Report 5984787-2 (Version None)
Quarter: 2008Q4

REPORT INFORMATION
  Report Type: 
  Country: None (occurrence: None)
  Receive Date: 20081202
  Receipt Date: 20081113
  Transmission Date: 20090506
  Serious: Yes (Other)
  Sender: FDA-Public Use
  Company Number: 2008EU002548

PATIENT
  Age: 6 Year
  Sex: Female

DRUGS (1)
  1. FK463(MICAFUNGIN) INJECTION [Suspect]
     Dosage: 30 MG UID/QD

REACTIONS (2)
  - BLOOD CALCIUM INCREASED [None]
  - BLOOD UREA INCREASED [None]
